FAERS Safety Report 4988594-9 (Version None)
Quarter: 2006Q2

REPORT INFORMATION
  Report Type: 
  Country: None (occurrence: None)
  Receive Date: 20060426
  Receipt Date: 20060410
  Transmission Date: 20061013
  Serious: Yes (Other)
  Sender: FDA-Public Use
  Company Number: FR200604001573

PATIENT
  Age: 64 Year
  Sex: Female

DRUGS (1)
  1. RALOXIFENE HCL [Suspect]
     Dosage: DAILY (1/D), ORAL
     Route: 048
     Dates: start: 20030101, end: 20051201

REACTIONS (1)
  - UTERINE CANCER [None]
